FAERS Safety Report 11793787 (Version 1)
Quarter: 2015Q4

REPORT INFORMATION
  Report Type: Spontaneous
  Country: US (occurrence: None)
  Receive Date: 20151201
  Receipt Date: 20151201
  Transmission Date: 20160305
  Serious: Yes (Disabling, Other)
  Sender: FDA-Public Use
  Company Number: None

PATIENT
  Age: 60 Year
  Sex: Female
  Weight: 81.19 kg

DRUGS (3)
  1. LATISSE [Suspect]
     Active Substance: BIMATOPROST
     Indication: EYELASH INJURY
     Route: 047
     Dates: start: 20120301, end: 20150610
  2. COREG [Concomitant]
     Active Substance: CARVEDILOL
  3. VITAMINS [Concomitant]
     Active Substance: VITAMINS

REACTIONS (2)
  - Corneal dystrophy [None]
  - Blindness [None]

NARRATIVE: CASE EVENT DATE: 20150718
